FAERS Safety Report 14174081 (Version 1)
Quarter: 2017Q4

REPORT INFORMATION
  Report Type: Spontaneous
  Country: DE (occurrence: DE)
  Receive Date: 20171109
  Receipt Date: 20171109
  Transmission Date: 20180321
  Serious: Yes (Death)
  Sender: FDA-Public Use
  Company Number: DE-TEVA-822089GER

PATIENT
  Age: 77 Year
  Sex: Female

DRUGS (12)
  1. LETROZOL RATIOPHARM [Suspect]
     Active Substance: LETROZOLE
     Indication: BREAST CANCER METASTATIC
     Dosage: 5 MILLIGRAM DAILY;
     Dates: start: 20171005, end: 20171007
  2. PANTOZOL [Concomitant]
     Active Substance: PANTOPRAZOLE SODIUM
     Dosage: 40 MILLIGRAM DAILY;
  3. INSUMAN RAPID 100 IE/ML [Concomitant]
     Dosage: 30 IU (INTERNATIONAL UNIT) DAILY;
  4. EFEROX [Concomitant]
     Active Substance: LEVOTHYROXINE SODIUM
     Dosage: 125 MICROGRAM DAILY;
  5. SIMVASTATIN. [Concomitant]
     Active Substance: SIMVASTATIN
     Dosage: 20 MILLIGRAM DAILY;
  6. ALENDRONSAEURE [Concomitant]
     Active Substance: ALENDRONATE SODIUM
  7. TORASEMID [Concomitant]
     Active Substance: TORSEMIDE
     Dosage: 30 MILLIGRAM DAILY;
  8. IBRANCE [Suspect]
     Active Substance: PALBOCICLIB
     Indication: BREAST CANCER METASTATIC
     Dosage: 250 MILLIGRAM DAILY;
     Dates: start: 20171005, end: 20171007
  9. CALCIMAGON D3 [Concomitant]
     Active Substance: CALCIUM\CHOLECALCIFEROL
     Dosage: 1 DOSAGE FORMS DAILY;
  10. SPIRONOLACTON [Concomitant]
     Active Substance: SPIRONOLACTONE
     Dosage: 25 MILLIGRAM DAILY;
  11. PROPRA RATIO [Concomitant]
     Dosage: 10 MILLIGRAM DAILY;
  12. METFORMIN [Concomitant]
     Active Substance: METFORMIN HYDROCHLORIDE
     Dosage: 2000 MILLIGRAM DAILY;

REACTIONS (1)
  - Sudden death [Fatal]

NARRATIVE: CASE EVENT DATE: 20171007
